FAERS Safety Report 12168074 (Version 1)
Quarter: 2016Q1

REPORT INFORMATION
  Report Type: Spontaneous
  Country: US (occurrence: US)
  Receive Date: 20160310
  Receipt Date: 20160310
  Transmission Date: 20160526
  Serious: Yes (Hospitalization)
  Sender: FDA-Public Use
  Company Number: US-NOVOPROD-482583

PATIENT
  Age: 66 Year
  Sex: Female
  Weight: 110.66 kg

DRUGS (5)
  1. LEVEMIR [Suspect]
     Active Substance: INSULIN DETEMIR
     Indication: DIABETES MELLITUS
     Dosage: 50 U, QD
     Route: 058
     Dates: start: 2004, end: 20160224
  2. NOVOLIN R [Suspect]
     Active Substance: INSULIN HUMAN
     Indication: DIABETES MELLITUS
     Dosage: 15 U, TID
     Route: 058
     Dates: end: 20160224
  3. LEVEMIR [Suspect]
     Active Substance: INSULIN DETEMIR
     Dosage: 55 U, QD
     Route: 058
     Dates: start: 20160224
  4. NOVOLIN R [Suspect]
     Active Substance: INSULIN HUMAN
     Dosage: SLIDING SCALE
     Route: 058
     Dates: start: 20160224
  5. NOVOLIN R [Suspect]
     Active Substance: INSULIN HUMAN
     Dosage: 17 U, TID
     Route: 058
     Dates: start: 20160224

REACTIONS (2)
  - Blood glucose increased [Recovered/Resolved]
  - Asthma [Recovered/Resolved]

NARRATIVE: CASE EVENT DATE: 20160224
